FAERS Safety Report 6319646-9 (Version None)
Quarter: 2009Q3

REPORT INFORMATION
  Report Type: 
  Country: None (occurrence: None)
  Receive Date: 20090822
  Receipt Date: 20081004
  Transmission Date: 20100115
  Serious: No
  Sender: FDA-Public Use
  Company Number: US-ABBOTT-08P-163-0479925-00

PATIENT
  Sex: Female
  Weight: 108.51 kg

DRUGS (16)
  1. NIASPAN [Suspect]
     Indication: HIGH DENSITY LIPOPROTEIN DECREASED
     Route: 048
     Dates: start: 20080925, end: 20081006
  2. NIASPAN [Suspect]
     Indication: LOW DENSITY LIPOPROTEIN INCREASED
  3. NIASPAN [Suspect]
     Indication: BLOOD TRIGLYCERIDES INCREASED
  4. LOVAZA [Concomitant]
     Indication: SUPPLEMENTATION THERAPY
     Route: 048
     Dates: start: 20071001
  5. GLIBENCLAMIDE [Concomitant]
     Indication: DIABETES MELLITUS
     Route: 048
     Dates: start: 20000101
  6. OXYCODONE HCL [Concomitant]
     Indication: PAIN MANAGEMENT
     Route: 048
     Dates: start: 19920101
  7. RALOXIFENE HCL [Concomitant]
     Indication: OSTEOPOROSIS
     Route: 048
     Dates: start: 19980101
  8. LOTREL [Concomitant]
     Indication: HYPERTENSION
     Dosage: 5/40 MG DAILY
     Route: 048
  9. OXAPROXIN [Concomitant]
     Indication: ARTHRITIS
     Route: 048
  10. TRIAMTERENE [Concomitant]
     Indication: HYPERTENSION
     Route: 048
  11. ALPHAGAN [Concomitant]
     Indication: GLAUCOMA
     Dosage: 15% 1 DROP EACH EYE TWICE DAILY
     Route: 047
     Dates: start: 20020101
  12. PRAVASTATIN SODIUM [Concomitant]
     Indication: DRUG USE FOR UNKNOWN INDICATION
  13. ASPIRIN [Concomitant]
     Indication: DRUG USE FOR UNKNOWN INDICATION
     Route: 048
  14. PROCHLORPERAZINE MALEATE [Concomitant]
     Indication: GLAUCOMA
     Dosage: .5% 1 DROP IN BOTH EYES
     Route: 047
     Dates: start: 20020101
  15. METFORMIN [Concomitant]
     Indication: DIABETES MELLITUS
     Route: 048
     Dates: start: 20020101
  16. MULTI-VITAMIN [Concomitant]
     Indication: VITAMIN SUPPLEMENTATION
     Route: 048

REACTIONS (2)
  - BLOOD GLUCOSE INCREASED [None]
  - PARAESTHESIA [None]
